FAERS Safety Report 5805450-4 (Version None)
Quarter: 2008Q3

REPORT INFORMATION
  Report Type: 
  Country: None (occurrence: None)
  Receive Date: 20080708
  Receipt Date: 20080624
  Transmission Date: 20090109
  Serious: Yes (Hospitalization)
  Sender: FDA-Public Use
  Company Number: CERZ-1000267

PATIENT
  Age: 60 Year
  Sex: Male
  Weight: 92.5 kg

DRUGS (3)
  1. CEREZYME [Suspect]
     Indication: GAUCHER'S DISEASE
     Dosage: 30 U/KG, Q2W, INTRAVENOUS
     Route: 042
     Dates: start: 20010901
  2. LEVOXYL [Concomitant]
  3. BENICAR [Concomitant]

REACTIONS (5)
  - ATRIAL FIBRILLATION [None]
  - MYOCARDIAL INFARCTION [None]
  - PLATELET COUNT DECREASED [None]
  - PLATELET FUNCTION TEST ABNORMAL [None]
  - PROTHROMBIN TIME PROLONGED [None]
